FAERS Safety Report 11402476 (Version 1)
Quarter: 2015Q3

REPORT INFORMATION
  Report Type: Spontaneous
  Country: US (occurrence: US)
  Receive Date: 20150821
  Receipt Date: 20150821
  Transmission Date: 20151125
  Serious: Yes (Other)
  Sender: FDA-Public Use
  Company Number: US-ROCHE-1313037

PATIENT
  Sex: Female

DRUGS (3)
  1. INCIVEK [Concomitant]
     Active Substance: TELAPREVIR
  2. PEGASYS [Suspect]
     Active Substance: PEGINTERFERON ALFA-2A
     Indication: HEPATITIS C
     Route: 065
     Dates: start: 20130614
  3. RIBASPHERE [Concomitant]
     Active Substance: RIBAVIRIN

REACTIONS (1)
  - Thrombosis [Unknown]
